FAERS Safety Report 7427514-4 (Version None)
Quarter: 2011Q2

REPORT INFORMATION
  Report Type: 
  Country: None (occurrence: None)
  Receive Date: 20110420
  Receipt Date: 20110413
  Transmission Date: 20111010
  Serious: Yes (Hospitalization)
  Sender: FDA-Public Use
  Company Number: NL-ABBOTT-10P-114-0688505-00

PATIENT
  Sex: Male
  Weight: 39 kg

DRUGS (11)
  1. HYDROCORTISONE [Concomitant]
     Indication: DERMATOMYOSITIS
     Dosage: 1/2 TABLET TWICE A DAY
     Route: 048
     Dates: start: 20100101
  2. OMEPRAZOL MSR [Concomitant]
     Indication: PROPHYLAXIS
  3. PREDNISOLONE [Concomitant]
     Indication: DERMATOMYOSITIS
     Dosage: 1 1/2 TABLET BID
     Route: 048
     Dates: start: 19970101, end: 20100101
  4. ALENDRONATE SODIUM [Concomitant]
     Indication: OSTEOPOROSIS PROPHYLAXIS
     Route: 048
     Dates: start: 20070101
  5. AZITROMYCINE COATED TABLETS (2-WATER) [Concomitant]
     Indication: SKIN INFECTION
     Dosage: AS NEEDED
     Route: 048
     Dates: start: 20090801
  6. FOLINIC ACID [Concomitant]
     Indication: VITAMIN SUPPLEMENTATION
     Dosage: 1/2 TABLETS ONCE WEEKLY
     Route: 048
  7. NAPROXEN [Concomitant]
     Indication: PAIN
     Dosage: 1 UNIT  TWICE DAILY AS NEEDED
     Route: 048
  8. NAPROXEN [Concomitant]
     Indication: DERMATOMYOSITIS
  9. AMOXI [Concomitant]
     Indication: PROPHYLAXIS
     Dosage: 1 UNIT TWICE A DAY
     Route: 048
  10. OMEPRAZOL MSR [Concomitant]
     Indication: GASTRIC DISORDER
     Dosage: 1 UNIT TWICE A DAILY
     Route: 048
  11. HUMIRA [Suspect]
     Indication: DERMATOMYOSITIS
     Route: 058
     Dates: start: 20090831

REACTIONS (2)
  - SENSATION OF HEAVINESS [None]
  - LOCALISED INFECTION [None]
